FAERS Safety Report 5636402-5 (Version None)
Quarter: 2008Q1

REPORT INFORMATION
  Report Type: 
  Country: None (occurrence: None)
  Receive Date: 20080225
  Receipt Date: 20071207
  Transmission Date: 20080703
  Serious: No
  Sender: FDA-Public Use
  Company Number: A0697941A

PATIENT
  Age: 62 Year
  Sex: Female

DRUGS (9)
  1. VERAMYST [Suspect]
     Dosage: 4SPR PER DAY
     Route: 045
     Dates: start: 20071111, end: 20071114
  2. SINGULAIR [Concomitant]
  3. LASIX [Concomitant]
  4. VASOTEC [Concomitant]
  5. TENORMIN [Concomitant]
  6. CATAPRES [Concomitant]
  7. ASPIRIN [Concomitant]
  8. PAROXETINE HCL [Concomitant]
  9. PREVACID [Concomitant]

REACTIONS (1)
  - HEADACHE [None]
